FAERS Safety Report 6091531-X (Version None)
Quarter: 2009Q1

REPORT INFORMATION
  Report Type: 
  Country: None (occurrence: None)
  Receive Date: 20090225
  Receipt Date: 20090218
  Transmission Date: 20090719
  Serious: Yes (Hospitalization, Other)
  Sender: FDA-Public Use
  Company Number: PHHY2008BR31886

PATIENT
  Age: 10 Year
  Sex: Male
  Weight: 58 kg

DRUGS (1)
  1. RITALIN [Suspect]
     Indication: PSYCHOMOTOR HYPERACTIVITY
     Dosage: 10 MG, BID2SDO
     Route: 048
     Dates: start: 20030101, end: 20081209

REACTIONS (7)
  - ABDOMINAL PAIN UPPER [None]
  - APPETITE DISORDER [None]
  - HAEMATEMESIS [None]
  - HEAT STROKE [None]
  - IMMUNODEFICIENCY [None]
  - INFECTION [None]
  - VOMITING [None]
